FAERS Safety Report 23593953 (Version 2)
Quarter: 2024Q2

REPORT INFORMATION
  Report Type: Spontaneous
  Country: JP (occurrence: JP)
  Receive Date: 20240305
  Receipt Date: 20240408
  Transmission Date: 20240716
  Serious: No
  Sender: FDA-Public Use
  Company Number: JP-TAKEDA-2023TJP017277

PATIENT
  Age: 9 Decade
  Sex: Female

DRUGS (3)
  1. AGRYLIN [Suspect]
     Active Substance: ANAGRELIDE HYDROCHLORIDE
     Indication: Essential thrombocythaemia
     Dosage: UNK
     Route: 048
     Dates: start: 20231003
  2. AGRYLIN [Suspect]
     Active Substance: ANAGRELIDE HYDROCHLORIDE
     Dosage: 5 DOSAGE FORM
     Route: 048
  3. AGRYLIN [Suspect]
     Active Substance: ANAGRELIDE HYDROCHLORIDE
     Dosage: 6 DOSAGE FORM
     Route: 048

REACTIONS (5)
  - Fall [Unknown]
  - Cognitive disorder [Unknown]
  - Peripheral swelling [Not Recovered/Not Resolved]
  - Product dose omission issue [Unknown]
  - Drug ineffective [Unknown]

NARRATIVE: CASE EVENT DATE: 20231201
